FAERS Safety Report 10518942 (Version 1)
Quarter: 2014Q4

REPORT INFORMATION
  Report Type: Spontaneous
  Country: US (occurrence: US)
  Receive Date: 20141015
  Receipt Date: 20141015
  Transmission Date: 20150528
  Serious: No
  Sender: FDA-Public Use
  Company Number: US-TARO-2013P1020581

PATIENT
  Sex: Female

DRUGS (1)
  1. HYDROCORTISONE VALERATE CREAM USP 0.2% [Suspect]
     Active Substance: HYDROCORTISONE VALERATE
     Indication: HERPES ZOSTER
     Route: 061
     Dates: start: 201308

REACTIONS (3)
  - Drug effect decreased [Not Recovered/Not Resolved]
  - Incorrect drug administration duration [Not Recovered/Not Resolved]
  - Drug administered at inappropriate site [Not Recovered/Not Resolved]

NARRATIVE: CASE EVENT DATE: 201310
